FAERS Safety Report 22333165 (Version 1)
Quarter: 2023Q2

REPORT INFORMATION
  Report Type: Report from Study
  Country: CA (occurrence: CA)
  Receive Date: 20230517
  Receipt Date: 20230517
  Transmission Date: 20230721
  Serious: Yes (Other)
  Sender: FDA-Public Use
  Company Number: CA-JNJFOC-20230530710

PATIENT
  Age: 14 Year
  Sex: Female

DRUGS (2)
  1. REMICADE [Suspect]
     Active Substance: INFLIXIMAB
     Indication: Iridocyclitis
     Route: 042
     Dates: start: 20221121
  2. REMICADE [Suspect]
     Active Substance: INFLIXIMAB
     Dosage: DOSE REDUCED
     Route: 042

REACTIONS (1)
  - Neutropenia [Unknown]
